FAERS Safety Report 7893316-8 (Version None)
Quarter: 2011Q4

REPORT INFORMATION
  Report Type: 
  Country: None (occurrence: None)
  Receive Date: 20111104
  Receipt Date: 20111031
  Transmission Date: 20120403
  Serious: Yes (Hospitalization)
  Sender: FDA-Public Use
  Company Number: NL-PFIZER INC-2011266690

PATIENT
  Age: 72 Year
  Sex: Male

DRUGS (4)
  1. CLINDAMYCIN HCL [Suspect]
     Indication: PROPHYLAXIS
     Dosage: 600 MG, 3X/DAY
     Dates: start: 20110913
  2. METFORMIN [Concomitant]
     Dosage: 850 MG, 3X/DAY
  3. NOVOLOG MIX 70/30 [Concomitant]
     Dosage: UNK
  4. CIPROFLOXACIN [Suspect]
     Indication: PROPHYLAXIS
     Dosage: 750 MG, 2X/DAY
     Dates: start: 20111013

REACTIONS (1)
  - HYPOGLYCAEMIA [None]
